FAERS Safety Report 9864988 (Version 1)
Quarter: 2014Q1

REPORT INFORMATION
  Report Type: Spontaneous
  Country: US (occurrence: US)
  Receive Date: 20140203
  Receipt Date: 20140203
  Transmission Date: 20141002
  Serious: Yes (Hospitalization, Other)
  Sender: FDA-Public Use
  Company Number: US-AMGEN-USASP2014005502

PATIENT
  Age: 53 Year
  Sex: Male

DRUGS (3)
  1. ENBREL [Suspect]
     Indication: PSORIATIC ARTHROPATHY
     Dosage: 50 MG, 2 TIMES/WK
     Route: 065
     Dates: start: 2000
  2. ENBREL [Suspect]
     Indication: PSORIASIS
  3. METHOTREXATE [Concomitant]
     Dosage: 20 MG, QWK
     Dates: start: 2012

REACTIONS (7)
  - Staphylococcal infection [Recovered/Resolved]
  - Psoriasis [Not Recovered/Not Resolved]
  - Arthritis [Recovered/Resolved]
  - Gait disturbance [Recovered/Resolved]
  - Mobility decreased [Recovered/Resolved]
  - Local swelling [Recovered/Resolved]
  - Soft tissue disorder [Recovered/Resolved]
